FAERS Safety Report 7215301-1 (Version None)
Quarter: 2011Q1

REPORT INFORMATION
  Report Type: 
  Country: None (occurrence: None)
  Receive Date: 20110107
  Receipt Date: 20101231
  Transmission Date: 20110831
  Serious: Yes (Death)
  Sender: FDA-Public Use
  Company Number: US-PFIZER INC-2011003067

PATIENT
  Sex: Male

DRUGS (6)
  1. MEPROBAMATE [Suspect]
  2. ACETAMINOPHEN [Suspect]
  3. CARISOPRODOL [Suspect]
  4. VALPROIC ACID [Suspect]
  5. OXYCODONE [Suspect]
  6. HYDROXYZINE HCL [Suspect]

REACTIONS (2)
  - RESPIRATORY ARREST [None]
  - CARDIAC ARREST [None]
